FAERS Safety Report 8394088-3 (Version None)
Quarter: 2012Q2

REPORT INFORMATION
  Report Type: 
  Country: None (occurrence: None)
  Receive Date: 20120530
  Receipt Date: 20120521
  Transmission Date: 20120825
  Serious: Yes (Other)
  Sender: FDA-Public Use
  Company Number: AT-JNJFOC-20120518274

PATIENT
  Sex: Male

DRUGS (3)
  1. REMICADE [Suspect]
     Route: 042
     Dates: start: 20110101
  2. REMICADE [Suspect]
     Indication: PRODUCT USED FOR UNKNOWN INDICATION
     Route: 042
     Dates: start: 20120501
  3. ANTI HYPERTENSIVE MEDICATION [Suspect]
     Indication: HYPERTENSION
     Route: 065

REACTIONS (5)
  - INFUSION RELATED REACTION [None]
  - DEHYDRATION [None]
  - DIARRHOEA [None]
  - VERTIGO [None]
  - SYNCOPE [None]
